FAERS Safety Report 9255488 (Version 1)
Quarter: 2013Q2

REPORT INFORMATION
  Report Type: Spontaneous
  Country: US (occurrence: None)
  Receive Date: 20130423
  Receipt Date: 20130423
  Transmission Date: 20140414
  Serious: No
  Sender: FDA-Public Use
  Company Number: None

PATIENT
  Age: 58 Year
  Sex: Female
  Weight: 81.65 kg

DRUGS (1)
  1. LOSARTAN [Suspect]
     Indication: HYPERTENSION
     Dosage: 50 MG  ONE TIME DAILY  PO
     Route: 048
     Dates: start: 20121215, end: 20130419

REACTIONS (9)
  - Grip strength decreased [None]
  - Vertigo [None]
  - Abasia [None]
  - Photophobia [None]
  - Nystagmus [None]
  - Nausea [None]
  - Dizziness [None]
  - Alopecia [None]
  - Weight increased [None]
